FAERS Safety Report 8451253-4 (Version None)
Quarter: 2012Q2

REPORT INFORMATION
  Report Type: 
  Country: None (occurrence: None)
  Receive Date: 20120620
  Receipt Date: 20120309
  Transmission Date: 20120825
  Serious: No
  Sender: FDA-Public Use
  Company Number: US-VERTEX PHARMACEUTICALS INC.-AE-2012-001825

PATIENT
  Sex: Male
  Weight: 102.15 kg

DRUGS (4)
  1. INCIVEK [Suspect]
     Indication: HEPATITIS C
     Route: 048
     Dates: start: 20111219, end: 20120228
  2. AMBIEN [Concomitant]
  3. RIBAVIRIN [Concomitant]
     Indication: HEPATITIS C
     Route: 048
     Dates: start: 20111219
  4. PEGASYS [Concomitant]
     Indication: HEPATITIS C
     Route: 058
     Dates: start: 20111219

REACTIONS (4)
  - RASH GENERALISED [None]
  - WHITE BLOOD CELL COUNT DECREASED [None]
  - PRURITUS [None]
  - HAEMATOCHEZIA [None]
